FAERS Safety Report 24252288 (Version 4)
Quarter: 2025Q1

REPORT INFORMATION
  Report Type: Report from Study
  Country: US (occurrence: US)
  Receive Date: 20240827
  Receipt Date: 20250325
  Transmission Date: 20250408
  Serious: Yes (Other)
  Sender: ABBVIE
  Company Number: US-ABBVIE-5891363

PATIENT
  Age: 61 Year
  Sex: Female

DRUGS (3)
  1. SKYRIZI [Suspect]
     Active Substance: RISANKIZUMAB-RZAA
     Indication: Psoriasis
     Route: 058
     Dates: start: 20231110, end: 202402
  2. SKYRIZI [Suspect]
     Active Substance: RISANKIZUMAB-RZAA
     Route: 058
     Dates: start: 20230406
  3. SKYRIZI [Suspect]
     Active Substance: RISANKIZUMAB-RZAA
     Route: 058

REACTIONS (13)
  - Hip surgery [Unknown]
  - Weight increased [Unknown]
  - Weight decreased [Unknown]
  - Knee operation [Unknown]
  - Hip surgery [Recovering/Resolving]
  - Hip surgery [Recovering/Resolving]
  - Hip surgery [Recovering/Resolving]
  - Retching [Recovering/Resolving]
  - Hip arthroplasty [Recovering/Resolving]
  - Infection [Unknown]
  - Hypersomnia [Unknown]
  - Myalgia [Unknown]
  - Vomiting [Unknown]

NARRATIVE: CASE EVENT DATE: 20231110
